FAERS Safety Report 15549586 (Version 4)
Quarter: 2025Q4

REPORT INFORMATION
  Report Type: Spontaneous
  Country: EU (occurrence: EU)
  Receive Date: 20181025
  Receipt Date: 20251125
  Transmission Date: 20260117
  Serious: Yes (Hospitalization, Other)
  Sender: AUROBINDO
  Company Number: EU-AUROBINDO-AUR-APL-2018-051879

PATIENT
  Age: 75 Year
  Sex: Male

DRUGS (6)
  1. PERINDOPRIL [Suspect]
     Active Substance: PERINDOPRIL
     Indication: Venous thrombosis
     Dosage: 10 MILLIGRAM
     Route: 065
  2. SIMVASTATIN [Suspect]
     Active Substance: SIMVASTATIN
     Indication: Venous thrombosis
     Dosage: 10 MILLIGRAM
     Route: 065
  3. ENOXAPARIN [Suspect]
     Active Substance: ENOXAPARIN
     Indication: Venous thrombosis
     Dosage: UNK
     Route: 065
  4. ENOXAPARIN [Suspect]
     Active Substance: ENOXAPARIN
     Indication: Anticoagulant therapy
     Dosage: 100 MILLIGRAM, ONCE A DAY ((100 MG, QD)
     Route: 065
  5. ENOXAPARIN [Suspect]
     Active Substance: ENOXAPARIN
     Indication: Pulmonary embolism
  6. WARFARIN [Concomitant]
     Active Substance: WARFARIN
     Indication: Venous thrombosis
     Dosage: 5 MILLIGRAM, ONCE A DAY ((5 MG, QD)
     Route: 065

REACTIONS (7)
  - Deep vein thrombosis [Unknown]
  - Pulmonary embolism [Unknown]
  - Dyspnoea [Unknown]
  - Tachycardia [Unknown]
  - Chest pain [Unknown]
  - Tachypnoea [Unknown]
  - Wheezing [Unknown]
